FAERS Safety Report 4549659-9 (Version None)
Quarter: 2005Q1

REPORT INFORMATION
  Report Type: 
  Country: None (occurrence: None)
  Receive Date: 20050111
  Receipt Date: 20050104
  Transmission Date: 20050727
  Serious: Yes (Other)
  Sender: FDA-Public Use
  Company Number: GB-GLAXOSMITHKLINE-B0363377A

PATIENT
  Age: 16 Year
  Sex: Male

DRUGS (3)
  1. BECLOMETHASONE [Suspect]
     Indication: BRONCHOSPASM
     Route: 055
     Dates: start: 20041214, end: 20041215
  2. ALBUTEROL [Concomitant]
     Indication: BRONCHOSPASM
     Route: 055
  3. OXYTETRACYCLINE [Concomitant]
     Dosage: 250MG PER DAY
     Route: 048
     Dates: start: 20040927

REACTIONS (3)
  - ORBITAL OEDEMA [None]
  - PENILE SWELLING [None]
  - PENILE ULCERATION [None]
